FAERS Safety Report 7435633-1 (Version None)
Quarter: 2011Q2

REPORT INFORMATION
  Report Type: 
  Country: None (occurrence: None)
  Receive Date: 20110425
  Receipt Date: 20110303
  Transmission Date: 20111010
  Serious: No
  Sender: FDA-Public Use
  Company Number: US-MYLANLABS-2011S1004560

PATIENT
  Age: 71 Year
  Sex: Female

DRUGS (4)
  1. CLONIDINE [Suspect]
     Indication: BLOOD PRESSURE INCREASED
     Dosage: QWEEK
     Route: 062
     Dates: start: 20101201
  2. ATACAND [Concomitant]
     Indication: BLOOD PRESSURE INCREASED
  3. LORAZEPAM [Concomitant]
     Indication: ANXIETY
  4. OTHER RESPIRATORY SYSTEM PRODUCTS [Concomitant]
     Indication: ASTHMA
     Dosage: NEBULIZED MED

REACTIONS (2)
  - APPLICATION SITE RASH [None]
  - APPLICATION SITE PRURITUS [None]
